FAERS Safety Report 23230670 (Version 1)
Quarter: 2023Q4

REPORT INFORMATION
  Report Type: Spontaneous
  Country: US (occurrence: US)
  Receive Date: 20231127
  Receipt Date: 20231127
  Transmission Date: 20240109
  Serious: Yes (Hospitalization, Other)
  Sender: FDA-Public Use
  Company Number: US-SANDOZ-SDZ2023US058033

PATIENT
  Age: 69 Year
  Sex: Female

DRUGS (3)
  1. NAFCILLIN [Suspect]
     Active Substance: NAFCILLIN SODIUM
     Indication: Product used for unknown indication
     Dosage: 12 G/DAY
     Route: 065
  2. POTASSIUM CHLORIDE [Concomitant]
     Active Substance: POTASSIUM CHLORIDE
     Indication: Product used for unknown indication
     Dosage: UNK
     Route: 042
  3. POTASSIUM CHLORIDE [Concomitant]
     Active Substance: POTASSIUM CHLORIDE
     Dosage: UNK
     Route: 048

REACTIONS (1)
  - Gitelman^s syndrome [Unknown]
